FAERS Safety Report 21701260 (Version 1)
Quarter: 2022Q4

REPORT INFORMATION
  Report Type: Spontaneous
  Country: US (occurrence: None)
  Receive Date: 20221207
  Receipt Date: 20221207
  Transmission Date: 20230113
  Serious: Yes (Other)
  Sender: FDA-Public Use
  Company Number: None

PATIENT
  Age: 45 Year
  Sex: Female
  Weight: 109.32 kg

DRUGS (1)
  1. LEVOTHYROXINE [Suspect]
     Active Substance: LEVOTHYROXINE
     Indication: Hypothyroidism
     Dosage: FREQUENCY : DAILY;?
     Route: 048
     Dates: start: 2006

REACTIONS (7)
  - Therapeutic product effect decreased [None]
  - Product substitution issue [None]
  - Fatigue [None]
  - Flushing [None]
  - Palpitations [None]
  - Neck pain [None]
  - Therapy non-responder [None]

NARRATIVE: CASE EVENT DATE: 20060101
